FAERS Safety Report 9382673 (Version 2)
Quarter: 2013Q3

REPORT INFORMATION
  Report Type: Spontaneous
  Country: JP (occurrence: JP)
  Receive Date: 20130703
  Receipt Date: 20130710
  Transmission Date: 20140515
  Serious: Yes (Other)
  Sender: FDA-Public Use
  Company Number: JP-UCBSA-084288

PATIENT
  Age: 49 Year
  Sex: Female
  Weight: 31.5 kg

DRUGS (12)
  1. E KEPPRA [Suspect]
     Indication: EPILEPSY
     Route: 048
     Dates: start: 20130309, end: 20130419
  2. E KEPPRA [Suspect]
     Indication: EPILEPSY
     Route: 048
     Dates: start: 20120415, end: 20130308
  3. GABAPEN [Concomitant]
     Indication: EPILEPSY
     Route: 048
     Dates: start: 20130218
  4. RIVOTRIL [Concomitant]
     Indication: EPILEPSY
     Route: 048
     Dates: start: 20120708
  5. PHENOBAL [Concomitant]
  6. POLAPREZINC [Concomitant]
     Indication: ZINC DEFICIENCY
     Route: 048
     Dates: start: 20120415
  7. MAGMITT [Concomitant]
     Indication: CONSTIPATION
     Route: 048
     Dates: start: 20120415
  8. GASCON [Concomitant]
     Indication: CONSTIPATION
     Route: 048
     Dates: start: 20130309
  9. TEGRETOL [Concomitant]
     Indication: EPILEPSY
     Route: 048
     Dates: start: 20130223
  10. FERROMIA [Concomitant]
     Indication: IRON DEFICIENCY ANAEMIA
     Route: 048
     Dates: start: 20120723
  11. SAWACILLIN [Concomitant]
     Indication: PNEUMONIA
     Route: 048
     Dates: start: 20130406, end: 20130423
  12. RISPERDAL [Concomitant]
     Indication: INSOMNIA
     Dosage: 1% AT 0.5MG
     Dates: start: 20130330

REACTIONS (3)
  - Pneumonia aspiration [Recovering/Resolving]
  - Mania [Recovering/Resolving]
  - Insomnia [Recovering/Resolving]
